FAERS Safety Report 20490619 (Version 5)
Quarter: 2022Q2

REPORT INFORMATION
  Report Type: Spontaneous
  Country: US (occurrence: US)
  Receive Date: 20220218
  Receipt Date: 20220614
  Transmission Date: 20220721
  Serious: Yes (Hospitalization)
  Sender: FDA-Public Use
  Company Number: US-BIOVITRUM-2022US01919

PATIENT
  Age: 17 Year
  Sex: Male

DRUGS (4)
  1. KINERET [Suspect]
     Active Substance: ANAKINRA
     Indication: Systemic lupus erythematosus
     Route: 058
     Dates: start: 20220119
  2. KINERET [Suspect]
     Active Substance: ANAKINRA
     Indication: Autoimmune thyroiditis
     Route: 058
     Dates: start: 202201
  3. KINERET [Suspect]
     Active Substance: ANAKINRA
     Route: 058
     Dates: start: 20220119
  4. KINERET [Suspect]
     Active Substance: ANAKINRA
     Route: 058
     Dates: start: 20220119

REACTIONS (4)
  - Bacterial infection [Unknown]
  - Asthma [Unknown]
  - Injection site pain [Unknown]
  - Off label use [Not Recovered/Not Resolved]

NARRATIVE: CASE EVENT DATE: 20220119
